FAERS Safety Report 14160642 (Version 2)
Quarter: 2018Q3

REPORT INFORMATION
  Report Type: Spontaneous
  Country: US (occurrence: US)
  Receive Date: 20171105
  Receipt Date: 20180704
  Transmission Date: 20181010
  Serious: No
  Sender: FDA-Public Use
  Company Number: US-GLENMARK PHARMACEUTICALS-2017GMK029317

PATIENT

DRUGS (2)
  1. OMEPRAZOLE. [Suspect]
     Active Substance: OMEPRAZOLE
     Indication: GASTROOESOPHAGEAL REFLUX DISEASE
     Dosage: 20 MG, OD BEFORE MEALS
     Route: 048
     Dates: start: 201610
  2. OMEPRAZOLE. [Suspect]
     Active Substance: OMEPRAZOLE
     Dosage: 20 MG, 1 IN THE MORNING 1 IN THE EVENING)
     Route: 048
     Dates: start: 20171017

REACTIONS (3)
  - Drug effect incomplete [Unknown]
  - Incorrect drug administration duration [Unknown]
  - Burning mouth syndrome [Unknown]
